FAERS Safety Report 16540701 (Version 1)
Quarter: 2019Q3

REPORT INFORMATION
  Report Type: Spontaneous
  Country: US (occurrence: US)
  Receive Date: 20190707
  Receipt Date: 20190707
  Transmission Date: 20191004
  Serious: Yes (Other)
  Sender: FDA-Public Use
  Company Number: None

PATIENT
  Age: 71 Year
  Sex: Male
  Weight: 85.05 kg

DRUGS (9)
  1. CARVIDOLOL [Concomitant]
  2. AMLODIPINE [Concomitant]
     Active Substance: AMLODIPINE BESYLATE
  3. VIT D [Concomitant]
     Active Substance: VITAMIN D NOS
  4. MONTELUKAST SODIUM. [Suspect]
     Active Substance: MONTELUKAST SODIUM
     Indication: DERMATITIS ATOPIC
     Dosage: ?          QUANTITY:90 TABLET(S);?
     Route: 048
     Dates: start: 20190523, end: 20190625
  5. LISENOPRIL [Concomitant]
     Active Substance: LISINOPRIL
  6. ROSUVASTATIN. [Concomitant]
     Active Substance: ROSUVASTATIN
  7. EZETIMIBE. [Concomitant]
     Active Substance: EZETIMIBE
  8. CIALIS [Concomitant]
     Active Substance: TADALAFIL
  9. MULTIVIT QD [Concomitant]

REACTIONS (5)
  - Disease recurrence [None]
  - Off label use [None]
  - Product substitution issue [None]
  - Dermatitis atopic [None]
  - Product complaint [None]

NARRATIVE: CASE EVENT DATE: 20190520
